FAERS Safety Report 11115496 (Version 1)
Quarter: 2015Q2

REPORT INFORMATION
  Report Type: Spontaneous
  Country: US (occurrence: None)
  Receive Date: 20150504
  Receipt Date: 20150504
  Transmission Date: 20150821
  Serious: Yes (Other)
  Sender: FDA-Public Use
  Company Number: 1466355

PATIENT
  Age: 60 Year
  Sex: Male

DRUGS (8)
  1. OXALIPLATIN. [Concomitant]
     Active Substance: OXALIPLATIN
  2. AVASTIN [Suspect]
     Active Substance: BEVACIZUMAB
     Indication: COLON CANCER
     Route: 031
     Dates: start: 2010, end: 2010
  3. METFORMIN [Concomitant]
     Active Substance: METFORMIN HYDROCHLORIDE
  4. AVASTIN [Suspect]
     Active Substance: BEVACIZUMAB
     Indication: MACULAR DEGENERATION
     Route: 031
     Dates: start: 2010, end: 2010
  5. FOLINIC ACID [Concomitant]
     Active Substance: LEUCOVORIN
  6. 5-FLUOROURACIL [Concomitant]
     Active Substance: FLUOROURACIL
  7. SYMBICORT [Concomitant]
     Active Substance: BUDESONIDE\FORMOTEROL FUMARATE DIHYDRATE
  8. LEUCOVORIN (CALCIUM FOLINATE) [Concomitant]
     Active Substance: LEUCOVORIN

REACTIONS (7)
  - Blindness unilateral [None]
  - Retinal detachment [None]
  - Dry skin [None]
  - Constipation [None]
  - Skin oedema [None]
  - Off label use [None]
  - Skin mass [None]

NARRATIVE: CASE EVENT DATE: 201003
